FAERS Safety Report 5753265-8 (Version None)
Quarter: 2008Q2

REPORT INFORMATION
  Report Type: 
  Country: None (occurrence: None)
  Receive Date: 20080530
  Receipt Date: 20070921
  Transmission Date: 20081010
  Serious: No
  Sender: FDA-Public Use
  Company Number: A0683536A

PATIENT
  Age: 87 Year
  Sex: Female

DRUGS (10)
  1. VENTOLIN [Suspect]
     Indication: CHRONIC OBSTRUCTIVE PULMONARY DISEASE
     Dosage: 2PUFF THREE TIMES PER DAY
     Route: 055
     Dates: start: 20070912
  2. PULMICORT [Concomitant]
  3. HYDRALAZINE HCL [Concomitant]
  4. IMDUR [Concomitant]
  5. ATENOLOL [Concomitant]
  6. UNKNOWN MEDICATION [Concomitant]
  7. NEXIUM [Concomitant]
  8. LASIX [Concomitant]
  9. ASPIRIN [Concomitant]
  10. ANTIOXIDANTS [Concomitant]

REACTIONS (2)
  - PRURITUS [None]
  - RASH [None]
